FAERS Safety Report 6715365-5 (Version None)
Quarter: 2010Q2

REPORT INFORMATION
  Report Type: 
  Country: None (occurrence: None)
  Receive Date: 20100507
  Receipt Date: 20100507
  Transmission Date: 20101027
  Serious: No
  Sender: FDA-Public Use
  Company Number: None

PATIENT
  Age: 8 Year
  Sex: Male
  Weight: 53.5244 kg

DRUGS (1)
  1. CHILDREN'S MOTRIN [Suspect]
     Indication: HEADACHE
     Dosage: 3 1/2 TSP ONCE/DAY PO
     Route: 048
     Dates: start: 20100428, end: 20100429

REACTIONS (6)
  - ABDOMINAL PAIN UPPER [None]
  - APHAGIA [None]
  - CRYING [None]
  - MOANING [None]
  - PALLOR [None]
  - PRODUCT QUALITY ISSUE [None]
